FAERS Safety Report 25476755 (Version 1)
Quarter: 2025Q2

REPORT INFORMATION
  Report Type: Spontaneous
  Country: US (occurrence: US)
  Receive Date: 20250625
  Receipt Date: 20250625
  Transmission Date: 20250717
  Serious: No
  Sender: MERCK SHARP & DOHME LLC
  Company Number: US-009507513-2290750

PATIENT
  Age: 70 Decade
  Sex: Male

DRUGS (2)
  1. VERQUVO [Suspect]
     Active Substance: VERICIGUAT
     Dosage: 10MG ONCE DAILY
     Route: 048
     Dates: start: 202312
  2. VERQUVO [Suspect]
     Active Substance: VERICIGUAT
     Dosage: 5MG TABLET ONCE DAILY
     Route: 048

REACTIONS (1)
  - Malaise [Recovered/Resolved]

NARRATIVE: CASE EVENT DATE: 20250416
